FAERS Safety Report 13491245 (Version 3)
Quarter: 2017Q3

REPORT INFORMATION
  Report Type: Spontaneous
  Country: PT (occurrence: PT)
  Receive Date: 20170427
  Receipt Date: 20170910
  Transmission Date: 20171127
  Serious: Yes (Death, Other)
  Sender: FDA-Public Use
  Company Number: PT-ROCHE-1923995

PATIENT

DRUGS (27)
  1. MABTHERA [Suspect]
     Active Substance: RITUXIMAB
     Indication: B-CELL LYMPHOMA
  2. CHLORAMBUCIL [Concomitant]
     Active Substance: CHLORAMBUCIL
  3. BORTEZOMIB [Concomitant]
     Active Substance: BORTEZOMIB
  4. CISPLATIN. [Concomitant]
     Active Substance: CISPLATIN
  5. MABTHERA [Suspect]
     Active Substance: RITUXIMAB
     Indication: MARGINAL ZONE LYMPHOMA
  6. MABTHERA [Suspect]
     Active Substance: RITUXIMAB
     Indication: DIFFUSE LARGE B-CELL LYMPHOMA
     Route: 058
  7. MABTHERA [Suspect]
     Active Substance: RITUXIMAB
     Indication: MARGINAL ZONE LYMPHOMA
  8. PREDNISONE. [Concomitant]
     Active Substance: PREDNISONE
  9. DEXAMETHASONE. [Concomitant]
     Active Substance: DEXAMETHASONE
  10. FLUDARABINE [Concomitant]
     Active Substance: FLUDARABINE PHOSPHATE
  11. MABTHERA [Suspect]
     Active Substance: RITUXIMAB
     Indication: MANTLE CELL LYMPHOMA
  12. MABTHERA [Suspect]
     Active Substance: RITUXIMAB
     Indication: LYMPHOMA TRANSFORMATION
  13. ETOPOSIDE. [Concomitant]
     Active Substance: ETOPOSIDE
  14. VINCRISTINE [Concomitant]
     Active Substance: VINCRISTINE
  15. CYCLOPHOSPHAMIDE. [Concomitant]
     Active Substance: CYCLOPHOSPHAMIDE
  16. VINDESINE [Concomitant]
     Active Substance: VINDESINE
  17. BLEOMYCIN [Concomitant]
     Active Substance: BLEOMYCIN SULFATE
  18. MABTHERA [Suspect]
     Active Substance: RITUXIMAB
     Indication: DIFFUSE LARGE B-CELL LYMPHOMA
     Route: 042
  19. MABTHERA [Suspect]
     Active Substance: RITUXIMAB
     Indication: B-CELL LYMPHOMA
  20. MABTHERA [Suspect]
     Active Substance: RITUXIMAB
     Indication: MARGINAL ZONE LYMPHOMA
  21. MABTHERA [Suspect]
     Active Substance: RITUXIMAB
     Indication: LYMPHOCYTIC LYMPHOMA
  22. MABTHERA [Suspect]
     Active Substance: RITUXIMAB
     Indication: LYMPHOMA TRANSFORMATION
  23. MABTHERA [Suspect]
     Active Substance: RITUXIMAB
     Indication: LYMPHOCYTIC LYMPHOMA
  24. MABTHERA [Suspect]
     Active Substance: RITUXIMAB
     Indication: MANTLE CELL LYMPHOMA
  25. MABTHERA [Suspect]
     Active Substance: RITUXIMAB
     Indication: B-CELL SMALL LYMPHOCYTIC LYMPHOMA
  26. DOXORUBICIN [Concomitant]
     Active Substance: DOXORUBICIN
  27. CYTARABINE. [Concomitant]
     Active Substance: CYTARABINE

REACTIONS (7)
  - Intentional product use issue [Fatal]
  - Neutropenia [Unknown]
  - Administration related reaction [Unknown]
  - Febrile neutropenia [Unknown]
  - Infection [Unknown]
  - Death [Fatal]
  - Off label use [Fatal]
